FAERS Safety Report 24318036 (Version 1)
Quarter: 2024Q3

REPORT INFORMATION
  Report Type: Spontaneous
  Country: US (occurrence: US)
  Receive Date: 20240913
  Receipt Date: 20240913
  Transmission Date: 20241017
  Serious: Yes (Hospitalization, Other)
  Sender: VIFOR
  Company Number: US-Vifor (International) Inc.-VIT-2024-08116

PATIENT
  Age: 65 Year
  Sex: Female
  Weight: 113.9 kg

DRUGS (3)
  1. MIRCERA [Suspect]
     Active Substance: METHOXY POLYETHYLENE GLYCOL-EPOETIN BETA
     Indication: Nephrogenic anaemia
     Dosage: FIRST DOSE
     Route: 040
     Dates: start: 20240831, end: 20240831
  2. VENOFER [Suspect]
     Active Substance: IRON SUCROSE
     Indication: Product used for unknown indication
     Route: 042
     Dates: start: 20240824
  3. CALCITRIOL [Concomitant]
     Active Substance: CALCITRIOL
     Route: 048
     Dates: start: 20240824

REACTIONS (5)
  - Drug hypersensitivity [Unknown]
  - Dizziness [Unknown]
  - Chest discomfort [Unknown]
  - Dyspnoea [Unknown]
  - Blood pressure decreased [Unknown]

NARRATIVE: CASE EVENT DATE: 20240831
